FAERS Safety Report 26026066 (Version 1)
Quarter: 2025Q4

REPORT INFORMATION
  Report Type: Spontaneous
  Country: US (occurrence: None)
  Receive Date: 20251111
  Receipt Date: 20251111
  Transmission Date: 20260118
  Serious: Yes (Hospitalization)
  Sender: FDA-CTU
  Company Number: None

PATIENT
  Age: 71 Year
  Sex: Male
  Weight: 105.2 kg

DRUGS (6)
  1. ABIRATERONE ACETATE [Suspect]
     Active Substance: ABIRATERONE ACETATE
     Dates: end: 20251027
  2. CASODEX [Suspect]
     Active Substance: BICALUTAMIDE
     Indication: Product used for unknown indication
     Dates: end: 20250401
  3. PREDNISONE [Suspect]
     Active Substance: PREDNISONE
  4. ELIGARD [Suspect]
     Active Substance: LEUPROLIDE ACETATE
  5. ALLOPURINOL [Concomitant]
     Active Substance: ALLOPURINOL
     Dates: end: 20250912
  6. SIMVASTATIN [Concomitant]
     Active Substance: SIMVASTATIN

REACTIONS (15)
  - Feeling cold [None]
  - Systemic inflammatory response syndrome [None]
  - Sepsis [None]
  - Urosepsis [None]
  - Neutrophilia [None]
  - Lymphocele [None]
  - Seroma [None]
  - Bladder hypertrophy [None]
  - Renal disorder [None]
  - Klebsiella test positive [None]
  - Enterococcus test positive [None]
  - Aerococcus urinae infection [None]
  - Post procedural complication [None]
  - Suspected transmission of an infectious agent via product [None]
  - Bacteraemia [None]

NARRATIVE: CASE EVENT DATE: 20251027
